FAERS Safety Report 5428855-2 (Version None)
Quarter: 2007Q3

REPORT INFORMATION
  Report Type: 
  Country: None (occurrence: None)
  Receive Date: 20070824
  Receipt Date: 20070821
  Transmission Date: 20080115
  Serious: Yes (Hospitalization)
  Sender: FDA-Public Use
  Company Number: 2007SP016505

PATIENT
  Age: 43 Year
  Sex: Male
  Weight: 84.5 kg

DRUGS (7)
  1. TEMODAL [Suspect]
     Indication: GLIOBLASTOMA MULTIFORME
     Dosage: 300 MG;QD;PO
     Route: 048
     Dates: start: 20070808, end: 20070812
  2. CAELYX (PEGYLATED LIPOSOMAL DOXORUBICIN HCL) (DOXORUBICIN HYDROCHLORID [Suspect]
     Indication: GLIOBLASTOMA MULTIFORME
     Dosage: 78.8 MG; ;IV
     Route: 042
     Dates: start: 20070807, end: 20070807
  3. AMLODIPINE/ATORVASTATIN [Concomitant]
  4. INDAPAMIDE [Concomitant]
  5. ASPIRIN [Concomitant]
  6. PERINDOPRIL ERBUMINE [Concomitant]
  7. DEXAMETHASONE 0.5MG TAB [Concomitant]

REACTIONS (7)
  - ASTHENIA [None]
  - CONDITION AGGRAVATED [None]
  - DEHYDRATION [None]
  - FATIGUE [None]
  - MUCOSAL INFLAMMATION [None]
  - OESOPHAGEAL CANDIDIASIS [None]
  - ORAL FUNGAL INFECTION [None]
